FAERS Safety Report 7520955-6 (Version None)
Quarter: 2011Q2

REPORT INFORMATION
  Report Type: 
  Country: None (occurrence: None)
  Receive Date: 20110603
  Receipt Date: 20100331
  Transmission Date: 20111010
  Serious: Yes (Other)
  Sender: FDA-Public Use
  Company Number: PL-BAYER-201017530GPV

PATIENT
  Age: 38 Year
  Sex: Female

DRUGS (1)
  1. MIRENA [Suspect]
     Indication: CONTRACEPTION
     Dosage: 20 ?G (DAILY DOSE), CONT, INTRA-UTERINE
     Route: 015
     Dates: start: 20060101, end: 20100101

REACTIONS (1)
  - PREGNANCY WITH CONTRACEPTIVE DEVICE [None]
